FAERS Safety Report 6298220-7 (Version None)
Quarter: 2009Q3

REPORT INFORMATION
  Report Type: 
  Country: None (occurrence: None)
  Receive Date: 20090805
  Receipt Date: 20090727
  Transmission Date: 20100115
  Serious: Yes (Disabling, Other)
  Sender: FDA-Public Use
  Company Number: US-AVENTIS-200916195US

PATIENT
  Sex: Female

DRUGS (2)
  1. LANTUS [Suspect]
     Dosage: DOSE: 32-34 UNITS (DEPENDING ON AM FBS)
     Route: 058
  2. REGULAR INSULIN [Concomitant]
     Dosage: DOSE: SLIDING SCALE

REACTIONS (11)
  - BLOOD GLUCOSE INCREASED [None]
  - CEREBROVASCULAR ACCIDENT [None]
  - FAT TISSUE INCREASED [None]
  - FATIGUE [None]
  - GAIT DISTURBANCE [None]
  - INTESTINAL PERFORATION [None]
  - MOBILITY DECREASED [None]
  - MYOCARDIAL INFARCTION [None]
  - PAIN [None]
  - SWELLING [None]
  - WEIGHT DECREASED [None]
